FAERS Safety Report 5840433-X (Version None)
Quarter: 2008Q3

REPORT INFORMATION
  Report Type: 
  Country: None (occurrence: None)
  Receive Date: 20080807
  Receipt Date: 20080807
  Transmission Date: 20090109
  Serious: Yes (Life-Threatening)
  Sender: FDA-Public Use
  Company Number: None

PATIENT
  Sex: Male
  Weight: 80 kg

DRUGS (1)
  1. METRONIDAZOLE [Suspect]
     Indication: CLOSTRIDIUM DIFFICILE COLITIS
     Dosage: 500 MG TID PO
     Route: 048
     Dates: start: 20080617, end: 20080716

REACTIONS (4)
  - ASTHENIA [None]
  - ATAXIA [None]
  - DYSARTHRIA [None]
  - DYSKINESIA [None]
